FAERS Safety Report 7946209-1 (Version None)
Quarter: 2011Q4

REPORT INFORMATION
  Report Type: 
  Country: None (occurrence: None)
  Receive Date: 20111129
  Receipt Date: 20110609
  Transmission Date: 20120403
  Serious: Yes (Death, Life-Threatening, Hospitalization, Other)
  Sender: FDA-Public Use
  Company Number: BR-BAYER-2011-023573

PATIENT
  Age: 73 Year
  Sex: Male
  Weight: 77 kg

DRUGS (32)
  1. SORAFENIB (RAF KINASE INHIBITOR) [Suspect]
     Indication: HEPATIC NEOPLASM MALIGNANT
     Dosage: 400 MG, BID
     Route: 048
     Dates: start: 20100914, end: 20100923
  2. SORAFENIB (RAF KINASE INHIBITOR) [Suspect]
     Dosage: 400 MG, QD
     Route: 048
     Dates: start: 20101025, end: 20101115
  3. BLINDED SORAFENIB (RAF KINASE INHIBITOR) [Suspect]
     Dosage: 100 MG, QD
     Dates: start: 20110207, end: 20110228
  4. SORAFENIB (RAF KINASE INHIBITOR) [Suspect]
     Dosage: 400 MG, QD
     Dates: start: 20110309, end: 20110309
  5. BLINDED SORAFENIB (RAF KINASE INHIBITOR) [Suspect]
     Dosage: 100 MG, QD
     Dates: start: 20101206, end: 20101219
  6. NORFLOXACIN [Concomitant]
     Dosage: 800 MG, UNK
     Dates: start: 20110322, end: 20110327
  7. SORAFENIB (RAF KINASE INHIBITOR) [Suspect]
     Dosage: 400 MG, QD
     Route: 048
     Dates: start: 20100924, end: 20100924
  8. SORAFENIB (RAF KINASE INHIBITOR) [Suspect]
     Dosage: 400 MG, QD
     Route: 048
     Dates: start: 20101011, end: 20101024
  9. BLINDED SORAFENIB (RAF KINASE INHIBITOR) [Suspect]
     Dosage: 100 MG, QD
     Dates: start: 20101005, end: 20101024
  10. BLINDED SORAFENIB (RAF KINASE INHIBITOR) [Suspect]
     Dosage: 100 MG, QD
     Dates: start: 20101220, end: 20110116
  11. ULTRAVIST 150 [Concomitant]
     Indication: DIAGNOSTIC PROCEDURE
     Dosage: 1.5 ML/ KG
     Dates: start: 20100908, end: 20100908
  12. NORFLOXACIN [Concomitant]
     Indication: HAEMORRHAGE PROPHYLAXIS
     Dosage: 400 MG, UNK
     Dates: start: 20110319
  13. NORFLOXACIN [Concomitant]
     Dosage: 400 MG, UNK
     Dates: start: 20110321, end: 20110321
  14. NORFLOXACIN [Concomitant]
     Dosage: 400 MG, UNK
     Dates: start: 20110325, end: 20110325
  15. DIMETICONE [Concomitant]
     Indication: ABDOMINAL PAIN UPPER
     Dosage: 30 DROPS
     Dates: start: 20110411, end: 20110422
  16. SORAFENIB (RAF KINASE INHIBITOR) [Suspect]
     Dosage: 400 MG, QD
     Route: 048
     Dates: start: 20101206, end: 20101219
  17. NORFLOXACIN [Concomitant]
     Dosage: 400 MG, UNK
     Dates: start: 20110328, end: 20110328
  18. SORAFENIB (RAF KINASE INHIBITOR) [Suspect]
     Dosage: 400 MG, BID
     Route: 048
     Dates: start: 20101005, end: 20101010
  19. SORAFENIB (RAF KINASE INHIBITOR) [Suspect]
     Dosage: 400 MG, QD
     Route: 048
     Dates: start: 20101116, end: 20101205
  20. SORAFENIB (RAF KINASE INHIBITOR) [Suspect]
     Dosage: 400 MG BID
     Dates: start: 20110228, end: 20110308
  21. TRAMADOL HYDROCHLORIDE [Concomitant]
     Indication: ABDOMINAL PAIN UPPER
     Dosage: 1 DF, UNK
     Dates: start: 20100908, end: 20100908
  22. SORAFENIB (RAF KINASE INHIBITOR) [Suspect]
     Dosage: 400 MG, QD
     Route: 048
     Dates: start: 20110117, end: 20110206
  23. BLINDED SORAFENIB (RAF KINASE INHIBITOR) [Suspect]
     Dosage: 100 MG, QD
     Dates: start: 20101116, end: 20101205
  24. RELIEV [Concomitant]
     Indication: DIAGNOSTIC PROCEDURE
     Dosage: 14 G, UNK
     Dates: start: 20100908
  25. SORAFENIB (RAF KINASE INHIBITOR) [Suspect]
     Dosage: 400 MG, QD
     Route: 048
     Dates: start: 20101220, end: 20110116
  26. BLINDED SORAFENIB (RAF KINASE INHIBITOR) [Suspect]
     Indication: HEPATIC NEOPLASM MALIGNANT
     Dosage: 150 MG, QD
     Dates: start: 20100914, end: 20100924
  27. BLINDED SORAFENIB (RAF KINASE INHIBITOR) [Suspect]
     Dosage: 100 MG, QD
     Dates: start: 20110117, end: 20110206
  28. BLINDED SORAFENIB (RAF KINASE INHIBITOR) [Suspect]
     Dosage: 100 MG, QD
     Dates: start: 20110301, end: 20110309
  29. LUFTAL [Concomitant]
     Indication: ABDOMINAL PAIN UPPER
     Dosage: 125 MG-375 MG, PRN
     Dates: start: 20100909
  30. SORAFENIB (RAF KINASE INHIBITOR) [Suspect]
     Dosage: 400 MG, BID
     Route: 048
     Dates: start: 20110207, end: 20110227
  31. BLINDED SORAFENIB (RAF KINASE INHIBITOR) [Suspect]
     Dosage: 100 MG, QD
     Dates: start: 20101025, end: 20101115
  32. PROPOFOL [Concomitant]
     Indication: SEDATIVE THERAPY
     Dosage: 200 MG, UNK
     Dates: start: 20110320, end: 20110320

REACTIONS (8)
  - ENTEROBACTER INFECTION [None]
  - STAPHYLOCOCCAL INFECTION [None]
  - UPPER GASTROINTESTINAL HAEMORRHAGE [None]
  - PNEUMONIA BACTERIAL [None]
  - INTERSTITIAL LUNG DISEASE [None]
  - ENDOCARDITIS [None]
  - HEPATIC FAILURE [None]
  - LOWER GASTROINTESTINAL HAEMORRHAGE [None]
